FAERS Safety Report 5104789-8 (Version None)
Quarter: 2006Q3

REPORT INFORMATION
  Report Type: 
  Country: None (occurrence: None)
  Receive Date: 20060911
  Receipt Date: 20060911
  Transmission Date: 20061208
  Serious: Yes (Other)
  Sender: FDA-Public Use
  Company Number: None

PATIENT
  Age: 55 Year
  Sex: Female
  Weight: 70.3075 kg

DRUGS (1)
  1. CARAFATE [Suspect]
     Indication: ULCER
     Dosage: 1G   4 PER DAY   PO
     Route: 048
     Dates: start: 20060905, end: 20060907

REACTIONS (9)
  - BLOOD PRESSURE INCREASED [None]
  - DYSPHAGIA [None]
  - DYSPNOEA [None]
  - HEADACHE [None]
  - HEART RATE INCREASED [None]
  - NECK PAIN [None]
  - PANIC DISORDER [None]
  - PANIC REACTION [None]
  - PHARYNGEAL HYPOAESTHESIA [None]
